FAERS Safety Report 7184928-8 (Version None)
Quarter: 2010Q4

REPORT INFORMATION
  Report Type: 
  Country: None (occurrence: None)
  Receive Date: 20101222
  Receipt Date: 20101214
  Transmission Date: 20110411
  Serious: Yes (Hospitalization, Other)
  Sender: FDA-Public Use
  Company Number: US-BAXTER-2010BH028194

PATIENT
  Age: 69 Year
  Sex: Female

DRUGS (2)
  1. DIANEAL [Suspect]
     Indication: PERITONEAL DIALYSIS
     Route: 033
  2. DIANEAL PD-2 W/ DEXTROSE 1.5% [Suspect]
     Indication: PERITONEAL DIALYSIS
     Route: 033

REACTIONS (3)
  - GLOSSECTOMY [None]
  - LIP AND/OR ORAL CAVITY CANCER [None]
  - TONGUE NEOPLASM MALIGNANT STAGE UNSPECIFIED [None]
